FAERS Safety Report 5392064-6 (Version None)
Quarter: 2007Q3

REPORT INFORMATION
  Report Type: 
  Country: None (occurrence: None)
  Receive Date: 20070720
  Receipt Date: 20070711
  Transmission Date: 20080115
  Serious: Yes (Other)
  Sender: FDA-Public Use
  Company Number: US-JNJFOC-20060700484

PATIENT
  Sex: Male

DRUGS (7)
  1. REMICADE [Suspect]
     Route: 042
  2. REMICADE [Suspect]
     Route: 042
  3. REMICADE [Suspect]
     Route: 042
  4. REMICADE [Suspect]
     Indication: CROHN'S DISEASE
     Dosage: TOTAL OF 3 INFUSIONS ON UNKNOWN DATES
     Route: 042
  5. IMURAN [Concomitant]
  6. IMURAN [Concomitant]
     Indication: CROHN'S DISEASE
  7. PLAVIX [Concomitant]

REACTIONS (3)
  - PHLEBITIS [None]
  - RETINAL VASCULAR THROMBOSIS [None]
  - RETINAL VEIN OCCLUSION [None]
